FAERS Safety Report 6030971-1 (Version None)
Quarter: 2009Q1

REPORT INFORMATION
  Report Type: 
  Country: None (occurrence: None)
  Receive Date: 20090107
  Receipt Date: 20081230
  Transmission Date: 20090719
  Serious: Yes (Other)
  Sender: FDA-Public Use
  Company Number: US-RANBAXY-2008US-20257

PATIENT

DRUGS (1)
  1. EURAX TOPICAL CREAM [Suspect]
     Indication: ACARODERMATITIS
     Dosage: 10 %, UNK

REACTIONS (5)
  - BLOOD PRESSURE DECREASED [None]
  - CHEST DISCOMFORT [None]
  - NERVOUSNESS [None]
  - PARAESTHESIA [None]
  - PRURITUS GENERALISED [None]
